FAERS Safety Report 8484776-2 (Version None)
Quarter: 2012Q3

REPORT INFORMATION
  Report Type: 
  Country: None (occurrence: None)
  Receive Date: 20120703
  Receipt Date: 20120620
  Transmission Date: 20120928
  Serious: Yes (Hospitalization, Other)
  Sender: FDA-Public Use
  Company Number: BR-US-EMD SERONO, INC.-7084799

PATIENT
  Sex: Female

DRUGS (4)
  1. FOLIC ACID [Concomitant]
  2. REBIF [Suspect]
     Indication: RELAPSING-REMITTING MULTIPLE SCLEROSIS
     Route: 058
     Dates: start: 20020827
  3. LITHIUM CARBONATE [Concomitant]
  4. LEXOTAN [Concomitant]

REACTIONS (9)
  - BIPOLAR DISORDER [None]
  - DEPRESSION [None]
  - ABDOMINAL DISTENSION [None]
  - SUPRAVENTRICULAR TACHYCARDIA [None]
  - SICKLE CELL ANAEMIA [None]
  - ARRHYTHMIA [None]
  - SUICIDAL IDEATION [None]
  - MEMORY IMPAIRMENT [None]
  - INSOMNIA [None]
